FAERS Safety Report 8906649 (Version 1)
Quarter: 2012Q4

REPORT INFORMATION
  Report Type: 
  Country: BR (occurrence: BR)
  Receive Date: 20121114
  Receipt Date: 20121114
  Transmission Date: 20130627
  Serious: Yes (Other)
  Sender: FDA-Public Use
  Company Number: BR-ELI_LILLY_AND_COMPANY-BR201211001960

PATIENT
  Age: 68 Year
  Sex: Female

DRUGS (2)
  1. HUMULIN NPH [Suspect]
     Indication: DIABETES MELLITUS
     Dosage: 60 IU, bid
     Route: 058
     Dates: start: 2006
  2. CLOPIDOGREL [Concomitant]
     Dosage: 2 DF, each morning
     Route: 065

REACTIONS (6)
  - Device occlusion [Unknown]
  - Stent placement [Unknown]
  - Injection site mass [Not Recovered/Not Resolved]
  - Injection site pain [Not Recovered/Not Resolved]
  - Injection site erythema [Not Recovered/Not Resolved]
  - Injection site pain [Not Recovered/Not Resolved]
